FAERS Safety Report 4920090-7 (Version None)
Quarter: 2006Q1

REPORT INFORMATION
  Report Type: 
  Country: None (occurrence: None)
  Receive Date: 20060216
  Receipt Date: 20060203
  Transmission Date: 20060701
  Serious: Yes (Hospitalization)
  Sender: FDA-Public Use
  Company Number: 2006020241

PATIENT
  Age: 51 Year
  Sex: Female

DRUGS (19)
  1. FLUCONAZOLE [Suspect]
     Indication: ILL-DEFINED DISORDER
  2. CLOZAPINE [Suspect]
     Indication: ILL-DEFINED DISORDER
     Dosage: ORAL
     Route: 048
     Dates: start: 20050526
  3. LEVOTHYROXINE SODIUM [Suspect]
     Indication: ILL-DEFINED DISORDER
  4. VALPROATE SODIUM [Suspect]
     Indication: ILL-DEFINED DISORDER
  5. RANITIDINE [Suspect]
     Indication: ILL-DEFINED DISORDER
  6. HYDROCORTISONE [Suspect]
     Indication: ILL-DEFINED DISORDER
  7. CIPROFLOXACIN [Suspect]
     Indication: ILL-DEFINED DISORDER
  8. FENTANYL [Suspect]
     Indication: ILL-DEFINED DISORDER
  9. ACETAMINOPHEN [Suspect]
     Indication: ILL-DEFINED DISORDER
  10. ALL OTHER THERAPEUTIC PRODUCTS [Concomitant]
  11. LITHIUM (LITHIUM) [Concomitant]
  12. LACTULOSE [Concomitant]
  13. ENOXAPARIN SODIUM [Concomitant]
  14. ENOXAPARIN SODIUM [Concomitant]
  15. PROPOFOL [Concomitant]
  16. MIDAZOLAM HCL [Concomitant]
  17. NORADRENALINE (NOREPINEPHRINE) [Concomitant]
  18. POTASSIUM (POTASSIUM) [Concomitant]
  19. INSULIN [Concomitant]

REACTIONS (1)
  - LOSS OF CONSCIOUSNESS [None]
